FAERS Safety Report 9355835 (Version 2)
Quarter: 2013Q2

REPORT INFORMATION
  Report Type: Spontaneous
  Country: GB (occurrence: GB)
  Receive Date: 20130619
  Receipt Date: 20130626
  Transmission Date: 20140414
  Serious: Yes (Other)
  Sender: FDA-Public Use
  Company Number: GB-TEVA-379209ISR

PATIENT
  Age: 16 Year
  Sex: Female
  Weight: 53.6 kg

DRUGS (20)
  1. DOXORUBICIN HYDROCHLORIDE [Suspect]
     Indication: OSTEOSARCOMA
     Dosage: 59 MILLIGRAM DAILY; (LIQUID, INTRAVENOUS) 59 MG FOR OSTEOSARCOMA
     Route: 042
     Dates: start: 20120417, end: 20120419
  2. ONDANSETRON [Suspect]
     Indication: PROPHYLAXIS OF NAUSEA AND VOMITING
     Dosage: 16 MILLIGRAM DAILY;
     Route: 048
     Dates: start: 20120418, end: 20120420
  3. ONDANSETRON [Suspect]
     Indication: PROPHYLAXIS OF NAUSEA AND VOMITING
     Dosage: 8 MILLIGRAM DAILY; DOSAGE FORM: TABLET
     Route: 048
     Dates: start: 20120417, end: 20120417
  4. ONDANSETRON [Suspect]
     Indication: NAUSEA
     Dosage: 16 MILLIGRAM DAILY; DOSAGE FORM: LIQUID
     Route: 042
     Dates: start: 20120414, end: 20120414
  5. CISPLATIN [Suspect]
     Indication: OSTEOSARCOMA
     Dosage: 63 MILLIGRAM DAILY; DOSAGE FORM: LIQUID
     Route: 042
     Dates: start: 20120417, end: 20120420
  6. APREPITANT [Suspect]
     Indication: PROPHYLAXIS OF NAUSEA AND VOMITING
     Route: 048
     Dates: start: 20120418, end: 20120419
  7. APREPITANT [Suspect]
     Indication: PROPHYLAXIS OF NAUSEA AND VOMITING
     Route: 048
     Dates: start: 20120417, end: 20120417
  8. DEXAMETHASONE SODIUM PHOSPHATE [Suspect]
     Indication: PROPHYLAXIS OF NAUSEA AND VOMITING
     Dosage: DOSAGE FORM: UNSPECIFIED
     Route: 041
     Dates: start: 20120417, end: 20120417
  9. DEXAMETHASONE SODIUM PHOSPHATE [Suspect]
     Indication: PROPHYLAXIS OF NAUSEA AND VOMITING
     Dosage: DOSAGE FORM: UNSPECIFIED
     Route: 042
     Dates: start: 20120418, end: 20120420
  10. TETRACAINE [Concomitant]
     Indication: ANALGESIC THERAPY
     Dosage: DOSAGE FORM: CREAM
     Route: 061
     Dates: start: 20120413, end: 20120413
  11. METOCLOPRAMIDE [Concomitant]
     Indication: VOMITING
     Dosage: DOSAGE FORM: UNSPECIFIED
     Route: 065
     Dates: start: 20120419, end: 20120419
  12. METOCLOPRAMIDE [Concomitant]
     Indication: NAUSEA
     Dosage: DOSAGE FORM: UNSPECIFIED
     Route: 065
     Dates: start: 20120419, end: 20120419
  13. ACETAMINOPHEN [Concomitant]
     Indication: ANALGESIC THERAPY
     Dosage: DOSAGE FORM: UNSPECIFIED
     Route: 065
     Dates: start: 20120413, end: 20120418
  14. LACTULOSE [Concomitant]
     Indication: CONSTIPATION
     Dosage: DOSAGE FORM: UNSPECIFIED
     Route: 065
     Dates: start: 20120420
  15. LACTULOSE [Concomitant]
     Indication: CONSTIPATION
     Dosage: 20 ML DAILY; DOSAGE FORM: UNSPECIFIED
     Route: 065
     Dates: start: 20120419
  16. LACTULOSE [Concomitant]
     Indication: CONSTIPATION
     Dosage: DOSAGE FORM: UNSPECIFIED
     Route: 065
     Dates: start: 20120418
  17. DIAZEPAM [Concomitant]
     Indication: SEDATION
     Dosage: DOSAGE FORM: UNSPECIFIED
     Route: 065
     Dates: start: 20120424
  18. UNSPECIFIED MEDICATION [Concomitant]
     Indication: FLUID REPLACEMENT
     Dosage: DOSAGE FORM: UNSPECIFIED
     Route: 042
     Dates: start: 20120417, end: 20120419
  19. DIHYDROCODEINE [Concomitant]
     Indication: PAIN MANAGEMENT
     Route: 065
     Dates: start: 20120414, end: 20120415
  20. LEVOMEPROMAZINE [Concomitant]
     Indication: VOMITING
     Dosage: DOSAGE FORM: LIQUID
     Route: 042
     Dates: start: 20120419, end: 20120419

REACTIONS (3)
  - Electrocardiogram T wave inversion [Recovered/Resolved]
  - Sinus arrhythmia [Recovered/Resolved]
  - Dyskinesia [Recovered/Resolved]
